FAERS Safety Report 6868604-4 (Version None)
Quarter: 2010Q3

REPORT INFORMATION
  Report Type: 
  Country: None (occurrence: None)
  Receive Date: 20100722
  Receipt Date: 20080603
  Transmission Date: 20110219
  Serious: No
  Sender: FDA-Public Use
  Company Number: US-PFIZER INC-2008046157

PATIENT
  Sex: Female
  Weight: 54.5 kg

DRUGS (8)
  1. CHANTIX [Suspect]
     Indication: SMOKING CESSATION THERAPY
     Dates: start: 20080517
  2. EFFEXOR XR [Concomitant]
  3. WELLBUTRIN XL [Concomitant]
  4. ATENOLOL [Concomitant]
  5. OMEPRAZOLE [Concomitant]
  6. LOVASTATIN [Concomitant]
  7. SEROQUEL [Concomitant]
  8. XANAX [Concomitant]
     Dosage: PNR

REACTIONS (1)
  - MIGRAINE [None]
